FAERS Safety Report 20653246 (Version 1)
Quarter: 2022Q1

REPORT INFORMATION
  Report Type: Spontaneous
  Country: US (occurrence: None)
  Receive Date: 20220329
  Receipt Date: 20220329
  Transmission Date: 20220424
  Serious: Yes (Hospitalization)
  Sender: FDA-Public Use
  Company Number: None

PATIENT
  Sex: Male

DRUGS (6)
  1. TACROLIMUS [Suspect]
     Active Substance: TACROLIMUS
     Indication: Nephrotic syndrome
     Dosage: TAKE 1 CAPSULE BY MOUTH TWICE DAILY?
     Route: 048
     Dates: start: 20220301
  2. LAMOTRIGINE [Concomitant]
     Active Substance: LAMOTRIGINE
  3. MYCOPHENOLATE MOFETIL [Concomitant]
     Active Substance: MYCOPHENOLATE MOFETIL
  4. RISPERDAL INJ [Concomitant]
  5. TACROLIMUS [Concomitant]
     Active Substance: TACROLIMUS
  6. TACROLIMUS A [Concomitant]

REACTIONS (1)
  - Hospitalisation [None]
